FAERS Safety Report 4552750-4 (Version None)
Quarter: 2005Q1

REPORT INFORMATION
  Report Type: 
  Country: None (occurrence: None)
  Receive Date: 20050112
  Receipt Date: 20050103
  Transmission Date: 20050727
  Serious: Yes (Other)
  Sender: FDA-Public Use
  Company Number: US-2004-029794

PATIENT
  Age: 56 Year
  Sex: Female
  Weight: 78 kg

DRUGS (5)
  1. CLIMARA [Suspect]
     Indication: HORMONE REPLACEMENT THERAPY
     Dosage: CONT, TRANSDERMAL
     Route: 062
     Dates: start: 19970101, end: 19980101
  2. PREMARIN [Suspect]
     Indication: HORMONE REPLACEMENT THERAPY
     Dates: start: 19860101, end: 19960101
  3. VIVELLE [Suspect]
     Indication: HORMONE REPLACEMENT THERAPY
     Dates: start: 19960101
  4. ESTRACE [Suspect]
     Indication: HORMONE REPLACEMENT THERAPY
     Dates: start: 19970101
  5. MOTRIN [Concomitant]

REACTIONS (2)
  - BREAST CANCER FEMALE [None]
  - CONDITION AGGRAVATED [None]
